FAERS Safety Report 24994075 (Version 1)
Quarter: 2025Q1

REPORT INFORMATION
  Report Type: Spontaneous
  Country: MX (occurrence: MX)
  Receive Date: 20250221
  Receipt Date: 20250221
  Transmission Date: 20250409
  Serious: Yes (Other)
  Sender: BRISTOL-MYERS SQUIBB COMPANY
  Company Number: MX-BRISTOL-MYERS SQUIBB COMPANY-2025-025367

PATIENT
  Age: 62 Year
  Sex: Male

DRUGS (1)
  1. SPRYCEL [Suspect]
     Active Substance: DASATINIB
     Indication: Product used for unknown indication
     Dates: start: 20241206, end: 202502

REACTIONS (2)
  - Pulmonary fibrosis [Unknown]
  - Hypertension [Unknown]
